FAERS Safety Report 5013541-3 (Version None)
Quarter: 2006Q2

REPORT INFORMATION
  Report Type: 
  Country: None (occurrence: None)
  Receive Date: 20060530
  Receipt Date: 20060228
  Transmission Date: 20061013
  Serious: Yes (Hospitalization)
  Sender: FDA-Public Use
  Company Number: US-BRISTOL-MYERS SQUIBB COMPANY-13297783

PATIENT
  Age: 61 Year
  Sex: Female
  Weight: 61 kg

DRUGS (11)
  1. ERBITUX [Suspect]
     Indication: COLON CANCER
     Route: 042
     Dates: start: 20051121, end: 20051121
  2. AVASTIN [Suspect]
     Indication: COLON CANCER
     Route: 042
     Dates: start: 20051205, end: 20051205
  3. LEUCOVORIN [Suspect]
     Indication: COLON CANCER
     Dosage: TOTAL DOSE ADM THIS COURSE: 660 MG.
     Dates: start: 20051216, end: 20051216
  4. OXALIPLATIN [Suspect]
     Indication: COLON CANCER
     Dosage: TOTAL DOSE ADM THIS COURSE: 140 MG
     Dates: start: 20051216, end: 20051216
  5. FLUOROURACIL [Suspect]
     Indication: COLON CANCER
     Dosage: 660 MG GIVEN AS IVP ON 19-DEC-05 FOLLOWED BY 3960 (MG) OVER 46 HRS VIA PUMP.
     Route: 042
     Dates: start: 20051216, end: 20051216
  6. FERROUS GLUCONATE [Concomitant]
  7. IBUPROFEN [Concomitant]
  8. MAGNESIUM SULFATE [Concomitant]
  9. PRILOSEC [Concomitant]
  10. TUMS [Concomitant]
  11. FOSAMAX [Concomitant]

REACTIONS (5)
  - DEEP VEIN THROMBOSIS [None]
  - PELVIC VENOUS THROMBOSIS [None]
  - RASH [None]
  - REFUSAL OF TREATMENT BY PATIENT [None]
  - THROMBOSIS [None]
